FAERS Safety Report 10210729 (Version 1)
Quarter: 2014Q2

REPORT INFORMATION
  Report Type: Spontaneous
  Country: AU (occurrence: AU)
  Receive Date: 20140602
  Receipt Date: 20140602
  Transmission Date: 20141212
  Serious: Yes (Hospitalization)
  Sender: FDA-Public Use
  Company Number: AU-ELI_LILLY_AND_COMPANY-AU201405007128

PATIENT
  Sex: Male

DRUGS (2)
  1. HUMALOG 25% LISPRO, 75% NPL [Suspect]
     Indication: TYPE 2 DIABETES MELLITUS
     Dosage: 8 U, EACH MORNING
     Route: 065
     Dates: start: 201312
  2. HUMALOG 25% LISPRO, 75% NPL [Suspect]
     Dosage: 30 U, EACH EVENING
     Route: 065
     Dates: start: 201312

REACTIONS (2)
  - Localised infection [Unknown]
  - Dysarthria [Unknown]
